FAERS Safety Report 18442790 (Version 4)
Quarter: 2022Q2

REPORT INFORMATION
  Report Type: Other
  Country: CN (occurrence: None)
  Receive Date: 20201029
  Receipt Date: 20220506
  Transmission Date: 20220721
  Serious: Yes (Hospitalization, Other)
  Sender: FDA-Public Use
  Company Number: CN-ROCHE-2266812

PATIENT
  Age: 61 Year
  Sex: Male
  Weight: 64 kg

DRUGS (2)
  1. AVASTIN [Suspect]
     Active Substance: BEVACIZUMAB
     Indication: Colon cancer
     Route: 041
     Dates: start: 20170901
  2. AVASTIN [Suspect]
     Active Substance: BEVACIZUMAB
     Route: 041
     Dates: start: 20180605, end: 20220323

REACTIONS (9)
  - Nasopharyngitis [Unknown]
  - Renal failure [Unknown]
  - Azotaemia [Unknown]
  - Influenza [Unknown]
  - Hypertension [Unknown]
  - Product storage error [Unknown]
  - Suspected product quality issue [Unknown]
  - Blood pressure increased [Unknown]
  - Gastroenteritis [Unknown]

NARRATIVE: CASE EVENT DATE: 20180320
